FAERS Safety Report 9125777 (Version 1)
Quarter: 2013Q1

REPORT INFORMATION
  Report Type: Spontaneous
  Country: TR (occurrence: TR)
  Receive Date: 20130227
  Receipt Date: 20130227
  Transmission Date: 20140127
  Serious: Yes (Death, Hospitalization)
  Sender: FDA-Public Use
  Company Number: TR-PFIZER INC-2013067785

PATIENT
  Sex: 0

DRUGS (1)
  1. XANAX [Suspect]
     Indication: AGITATION
     Dosage: UNK

REACTIONS (2)
  - Sleep attacks [Fatal]
  - Respiratory disorder [Fatal]
